FAERS Safety Report 8266939-4 (Version None)
Quarter: 2012Q2

REPORT INFORMATION
  Report Type: 
  Country: None (occurrence: None)
  Receive Date: 20120404
  Receipt Date: 20120404
  Transmission Date: 20120825
  Serious: Yes (Hospitalization)
  Sender: FDA-Public Use
  Company Number: None

PATIENT
  Age: 30 Year
  Sex: Female
  Weight: 63.4 kg

DRUGS (1)
  1. DILANTIN [Suspect]
     Indication: CONVULSION
     Dosage: 400MG QHS PO CHRONIC
     Route: 048

REACTIONS (4)
  - ANTICONVULSANT DRUG LEVEL INCREASED [None]
  - TREMOR [None]
  - DIPLOPIA [None]
  - TOXICITY TO VARIOUS AGENTS [None]
